FAERS Safety Report 17202254 (Version 2)
Quarter: 2020Q3

REPORT INFORMATION
  Report Type: Report from Study
  Country: US (occurrence: US)
  Receive Date: 20191226
  Receipt Date: 20200731
  Transmission Date: 20201102
  Serious: Yes (Other)
  Sender: FDA-Public Use
  Company Number: US-JNJFOC-20191239683

PATIENT
  Age: 60 Year
  Sex: Female

DRUGS (1)
  1. ELMIRON [Suspect]
     Active Substance: PENTOSAN POLYSULFATE SODIUM
     Indication: CYSTITIS INTERSTITIAL
     Dosage: (400 MG (200 MG DAILY FOR 1 YEAR)) FOR 18 YEARS?DAILY DOSE BY BODY WEIGHT 6.4 MG/KG
     Route: 065

REACTIONS (1)
  - Maculopathy [Unknown]
